FAERS Safety Report 19799631 (Version 4)
Quarter: 2021Q3

REPORT INFORMATION
  Report Type: Report from Study
  Country: DE (occurrence: DE)
  Receive Date: 20210907
  Receipt Date: 20210928
  Transmission Date: 20211014
  Serious: Yes (Hospitalization)
  Sender: FDA-Public Use
  Company Number: DE-EISAI MEDICAL RESEARCH-EC-2021-099044

PATIENT
  Age: 73 Year
  Sex: Female
  Weight: 51 kg

DRUGS (5)
  1. CITALOPRAM [Concomitant]
     Active Substance: CITALOPRAM HYDROBROMIDE
     Dates: start: 201905
  2. PEMBROLIZUMAB. [Suspect]
     Active Substance: PEMBROLIZUMAB
     Indication: COLORECTAL CANCER
     Dosage: UP TO 18 CYCLES
     Route: 042
     Dates: start: 20210811, end: 20210811
  3. LENVATINIB [Suspect]
     Active Substance: LENVATINIB
     Dosage: UNTIL DISCONTINUATION OR PROGRESSIVE DISEASE
     Route: 048
     Dates: start: 20210914
  4. PANTOPRAZOLE [Concomitant]
     Active Substance: PANTOPRAZOLE
     Dates: start: 201904
  5. LENVATINIB [Suspect]
     Active Substance: LENVATINIB
     Indication: COLORECTAL CANCER
     Dosage: UNTIL DISCONTINUATION OR PROGRESSIVE DISEASE
     Route: 048
     Dates: start: 20210811, end: 20210829

REACTIONS (2)
  - Posterior reversible encephalopathy syndrome [Recovered/Resolved]
  - Hypertension [Recovered/Resolved]

NARRATIVE: CASE EVENT DATE: 20210828
